FAERS Safety Report 6707213-4 (Version None)
Quarter: 2010Q2

REPORT INFORMATION
  Report Type: 
  Country: None (occurrence: None)
  Receive Date: 20100503
  Receipt Date: 20090327
  Transmission Date: 20101027
  Serious: No
  Sender: FDA-Public Use
  Company Number: US-ASTRAZENECA-2009UW07922

PATIENT
  Age: 68 Year
  Sex: Female
  Weight: 75.3 kg

DRUGS (3)
  1. NEXIUM [Suspect]
     Indication: GASTROOESOPHAGEAL REFLUX DISEASE
     Route: 048
     Dates: start: 20090302
  2. NEXIUM [Suspect]
     Indication: ULCER
     Route: 048
     Dates: start: 20090302
  3. SYNTHROID [Concomitant]

REACTIONS (5)
  - BODY TEMPERATURE DECREASED [None]
  - FEELING COLD [None]
  - GASTROOESOPHAGEAL REFLUX DISEASE [None]
  - PAIN [None]
  - REGURGITATION [None]
